FAERS Safety Report 5116936-2 (Version None)
Quarter: 2006Q3

REPORT INFORMATION
  Report Type: 
  Country: None (occurrence: None)
  Receive Date: 20060925
  Receipt Date: 20060906
  Transmission Date: 20061208
  Serious: Yes (Other)
  Sender: FDA-Public Use
  Company Number: S06-FRA-03796-01

PATIENT
  Age: 33 Year
  Sex: Male

DRUGS (4)
  1. SEROPLEX (ESCITALOPRAM) [Suspect]
     Dates: start: 20060516, end: 20060701
  2. SEROPLEX (ESCITALOPRAM) [Suspect]
     Dosage: 10 MG QD PO
     Route: 048
     Dates: start: 20060729, end: 20060806
  3. SEROPLEX (ESCITALOPRAM) [Suspect]
     Dosage: 20 MG QD PO
     Route: 048
     Dates: start: 20060807, end: 20060901
  4. ATARAX [Concomitant]

REACTIONS (3)
  - HEPATITIS [None]
  - PYREXIA [None]
  - SPLENOMEGALY [None]
